FAERS Safety Report 9193615 (Version 2)
Quarter: 2013Q2

REPORT INFORMATION
  Report Type: Spontaneous
  Country: US (occurrence: US)
  Receive Date: 20130327
  Receipt Date: 20130416
  Transmission Date: 20140414
  Serious: Yes (Other)
  Sender: FDA-Public Use
  Company Number: US-GLAXOSMITHKLINE-A1016350A

PATIENT
  Age: 65 Year
  Sex: Female

DRUGS (8)
  1. ADVAIR [Suspect]
     Indication: EMPHYSEMA
     Dosage: 1PUFF TWICE PER DAY
     Route: 055
     Dates: start: 20130304, end: 20130309
  2. METFORMIN [Concomitant]
  3. ATORVASTATIN [Concomitant]
  4. LISINOPRIL [Concomitant]
  5. BABY ASPIRIN [Concomitant]
  6. CALCIUM [Concomitant]
  7. LEXAPRO [Concomitant]
  8. XANAX [Concomitant]

REACTIONS (3)
  - Pneumonia [Recovered/Resolved]
  - Bronchitis [Recovered/Resolved]
  - Upper respiratory tract infection [Recovered/Resolved]
